FAERS Safety Report 18730767 (Version 5)
Quarter: 2021Q4

REPORT INFORMATION
  Report Type: Spontaneous
  Country: JP (occurrence: JP)
  Receive Date: 20210112
  Receipt Date: 20211223
  Transmission Date: 20220303
  Serious: Yes (Death, Hospitalization, Other)
  Sender: FDA-Public Use
  Company Number: JP-DSJP-DSJ-2021-100675

PATIENT
  Age: 70 Year
  Sex: Male
  Weight: 42 kg

DRUGS (14)
  1. ENHERTU [Suspect]
     Active Substance: FAM-TRASTUZUMAB DERUXTECAN-NXKI
     Indication: HER2 positive gastric cancer
     Dosage: 6.4 MG/KG, ONCE EVERY 3 WK
     Route: 041
     Dates: start: 20201223, end: 20201223
  2. LANSOPRAZOLE [Concomitant]
     Active Substance: LANSOPRAZOLE
     Indication: Gastric ulcer
     Dosage: 30 MG, QD
     Route: 048
     Dates: start: 20200509, end: 20201231
  3. DECADRON                           /00016001/ [Concomitant]
     Indication: Metastases to central nervous system
     Dosage: 4 MG, QD
     Route: 048
     Dates: start: 20201109, end: 20201231
  4. DECADRON                           /00016001/ [Concomitant]
     Indication: Brain oedema
  5. ZINC [Concomitant]
     Active Substance: ZINC
     Indication: Taste disorder
     Dosage: 50 MG, BID
     Route: 048
     Dates: start: 20201213, end: 20201231
  6. ZINC [Concomitant]
     Active Substance: ZINC
     Indication: Zinc deficiency
  7. CELECOXIB [Concomitant]
     Active Substance: CELECOXIB
     Indication: Bone pain
     Dosage: 200 MG, BID
     Route: 048
     Dates: start: 20200924, end: 20201231
  8. LEVETIRACETAM [Concomitant]
     Active Substance: LEVETIRACETAM
     Indication: Epilepsy
     Dosage: 500 MG, BID
     Route: 048
     Dates: start: 20201109, end: 20201231
  9. BELSOMRA [Concomitant]
     Active Substance: SUVOREXANT
     Indication: Insomnia
     Dosage: 20 MG, QD
     Route: 048
     Dates: start: 20200901, end: 20201231
  10. CYMBALTA [Concomitant]
     Active Substance: DULOXETINE HYDROCHLORIDE
     Indication: Neuropathy peripheral
     Dosage: 20 MG, QD
     Route: 048
     Dates: start: 20201226, end: 20201231
  11. LANSOPRAZOLE [Concomitant]
     Active Substance: LANSOPRAZOLE
     Indication: Gastric ulcer
     Dosage: 30 MG, BID
     Route: 042
     Dates: start: 20210101
  12. RINDERON                           /00008502/ [Concomitant]
     Indication: Metastases to central nervous system
     Dosage: 4 MG, QD
     Route: 042
     Dates: start: 20210101
  13. RINDERON                           /00008502/ [Concomitant]
     Indication: Brain oedema
  14. ELNEOPA NF NO.1 [Concomitant]
     Indication: Parenteral nutrition
     Dosage: 1500 ML, QD
     Route: 042
     Dates: start: 20201218, end: 20201227

REACTIONS (3)
  - Disease progression [Fatal]
  - Febrile neutropenia [Recovered/Resolved]
  - Platelet count decreased [Recovered/Resolved]

NARRATIVE: CASE EVENT DATE: 20210101
